FAERS Safety Report 5576678-6 (Version None)
Quarter: 2007Q4

REPORT INFORMATION
  Report Type: 
  Country: None (occurrence: None)
  Receive Date: 20071228
  Receipt Date: 20071220
  Transmission Date: 20080405
  Serious: Yes (Life-Threatening, Other)
  Sender: FDA-Public Use
  Company Number: US-PURDUE-USA_2007_0030874

PATIENT
  Sex: Female

DRUGS (1)
  1. MS CONTIN [Suspect]
     Indication: PAIN
     Dosage: 200 MG, Q12H

REACTIONS (2)
  - BRAIN DAMAGE [None]
  - RESPIRATORY ARREST [None]
